FAERS Safety Report 19894397 (Version 1)
Quarter: 2021Q3

REPORT INFORMATION
  Report Type: Spontaneous
  Country: US (occurrence: US)
  Receive Date: 20210929
  Receipt Date: 20210929
  Transmission Date: 20211014
  Serious: Yes (Hospitalization)
  Sender: FDA-Public Use
  Company Number: None

PATIENT
  Age: 89 Year
  Sex: Male
  Weight: 84 kg

DRUGS (1)
  1. REGEN?COV [Suspect]
     Active Substance: CASIRIVIMAB\IMDEVIMAB
     Indication: COVID-19
     Dosage: ?          OTHER FREQUENCY:ONCE;?
     Route: 042
     Dates: start: 20210928, end: 20210928

REACTIONS (8)
  - Tremor [None]
  - Disorientation [None]
  - Pneumonia [None]
  - Respiratory rate increased [None]
  - Oxygen saturation decreased [None]
  - Confusional state [None]
  - Lung opacity [None]
  - Chills [None]

NARRATIVE: CASE EVENT DATE: 20210928
